FAERS Safety Report 4899276-6 (Version None)
Quarter: 2006Q1

REPORT INFORMATION
  Report Type: 
  Country: None (occurrence: None)
  Receive Date: 20060131
  Receipt Date: 20060118
  Transmission Date: 20060701
  Serious: Yes (Life-Threatening, Hospitalization, Other)
  Sender: FDA-Public Use
  Company Number: HQWYE436619JAN06

PATIENT
  Age: 75 Year
  Sex: Male

DRUGS (5)
  1. CORDARONE [Suspect]
     Indication: ATRIAL FIBRILLATION
     Dosage: 200 MG TABLET; DAILY FREQUENCY NOT PROVIDE; ORAL
     Route: 048
     Dates: start: 20051113
  2. CORDARONE [Suspect]
     Indication: ATRIAL FLUTTER
     Dosage: 200 MG TABLET; DAILY FREQUENCY NOT PROVIDE; ORAL
     Route: 048
     Dates: start: 20051113
  3. CANCIDAS [Suspect]
     Indication: ASPERGILLOSIS
     Dosage: POWDER FORM; 50MG UNIT DOSE; DAILY FREQUENCY NOT SPECIFIED; INTRAVENOUS
     Route: 042
     Dates: start: 20051127
  4. CIPROFLOXACIN [Suspect]
     Dates: start: 20051125
  5. VFEND [Suspect]
     Indication: ASPERGILLOSIS
     Dosage: 200 MG DOSE UNIT; DAILY FREQUENCY NOT SPECIFIED; INTRAVENOUS
     Route: 042
     Dates: start: 20051117, end: 20051129

REACTIONS (5)
  - ARRHYTHMIA SUPRAVENTRICULAR [None]
  - BRADYCARDIA [None]
  - CARDIAC ARREST [None]
  - ELECTROCARDIOGRAM QT PROLONGED [None]
  - INTERSTITIAL LUNG DISEASE [None]
